FAERS Safety Report 7502677-0 (Version None)
Quarter: 2011Q2

REPORT INFORMATION
  Report Type: 
  Country: None (occurrence: None)
  Receive Date: 20110517
  Receipt Date: 20100212
  Transmission Date: 20111010
  Serious: Yes (Hospitalization, Other)
  Sender: FDA-Public Use
  Company Number: 2010SP009502

PATIENT
  Age: 25 Year
  Sex: Female
  Weight: 117.028 kg

DRUGS (9)
  1. COUMADIN [Suspect]
     Indication: THROMBOSIS PROPHYLAXIS
     Dates: start: 20080301, end: 20100101
  2. COUMADIN [Suspect]
     Indication: THROMBOSIS
     Dates: start: 20080301, end: 20100101
  3. PROZAC [Concomitant]
  4. NUVARING [Suspect]
     Indication: CONTRACEPTION
     Dosage: QM;
     Dates: start: 20050801, end: 20080301
  5. NUVARING [Suspect]
     Indication: DYSMENORRHOEA
     Dosage: QM;
     Dates: start: 20050801, end: 20080301
  6. NUVARING [Suspect]
     Indication: MENSTRUAL CYCLE MANAGEMENT
     Dosage: QM;
     Dates: start: 20050801, end: 20080301
  7. LEVAQUIN [Suspect]
     Indication: PNEUMONIA
     Dosage: 750 MG QD,
     Dates: start: 20080304
  8. TREXIMET [Concomitant]
  9. IMITREX [Concomitant]

REACTIONS (39)
  - BINGE EATING [None]
  - MIGRAINE [None]
  - PYREXIA [None]
  - PLEURITIC PAIN [None]
  - OBESITY [None]
  - JOINT INJURY [None]
  - PNEUMONIA [None]
  - MULTIPLE INJURIES [None]
  - DERMATITIS CONTACT [None]
  - NASAL CONGESTION [None]
  - PULMONARY INFARCTION [None]
  - ATELECTASIS [None]
  - PLEURAL EFFUSION [None]
  - LIVER FUNCTION TEST ABNORMAL [None]
  - HYPOAESTHESIA FACIAL [None]
  - FEELING ABNORMAL [None]
  - CHEST PAIN [None]
  - TRANSIENT ISCHAEMIC ATTACK [None]
  - WEIGHT FLUCTUATION [None]
  - LUNG INFILTRATION [None]
  - SINUS TACHYCARDIA [None]
  - VIITH NERVE PARALYSIS [None]
  - INTERNATIONAL NORMALISED RATIO FLUCTUATION [None]
  - OEDEMA [None]
  - CERVIX OPERATION [None]
  - ASTHENIA [None]
  - PROTHROMBIN TIME PROLONGED [None]
  - ACTIVATED PARTIAL THROMBOPLASTIN TIME PROLONGED [None]
  - WEIGHT LOSS POOR [None]
  - DRUG HYPERSENSITIVITY [None]
  - NAUSEA [None]
  - HYPOAESTHESIA [None]
  - MUSCULOSKELETAL PAIN [None]
  - MUSCULAR WEAKNESS [None]
  - GALLBLADDER DISORDER [None]
  - PULMONARY EMBOLISM [None]
  - UPPER-AIRWAY COUGH SYNDROME [None]
  - DYSPNOEA [None]
  - MYDRIASIS [None]
